FAERS Safety Report 7875430-6 (Version None)
Quarter: 2011Q4

REPORT INFORMATION
  Report Type: 
  Country: None (occurrence: None)
  Receive Date: 20111031
  Receipt Date: 20111020
  Transmission Date: 20120403
  Serious: Yes (Hospitalization)
  Sender: FDA-Public Use
  Company Number: PHFR2011IE02222

PATIENT
  Sex: Female

DRUGS (2)
  1. CLOZARIL [Suspect]
     Indication: SCHIZOPHRENIA
     Dosage: 50 MG NOCTE
     Route: 048
     Dates: start: 20020905
  2. PAROXETINE HCL [Concomitant]
     Indication: SCHIZOPHRENIA
     Dosage: 20 MG, UNK

REACTIONS (1)
  - FEMUR FRACTURE [None]
